FAERS Safety Report 8778906 (Version 3)
Quarter: 2012Q4

REPORT INFORMATION
  Report Type: 
  Country: US (occurrence: US)
  Receive Date: 20120912
  Receipt Date: 20121001
  Transmission Date: 20130627
  Serious: Yes (Hospitalization)
  Sender: FDA-Public Use
  Company Number: US-UCBSA-065220

PATIENT
  Sex: Female

DRUGS (1)
  1. CIMZIA [Suspect]
     Indication: CROHN^S DISEASE
     Dosage: MAINTENANCE 400 MG EVERY 4 WEEKS
     Route: 058
     Dates: start: 20100825

REACTIONS (4)
  - Coronary artery occlusion [Unknown]
  - Pneumonia [Unknown]
  - Ankle fracture [Unknown]
  - Fall [Unknown]
